FAERS Safety Report 14153981 (Version 2)
Quarter: 2017Q4

REPORT INFORMATION
  Report Type: Spontaneous
  Country: US (occurrence: US)
  Receive Date: 20171102
  Receipt Date: 20171108
  Transmission Date: 20180321
  Serious: No
  Sender: FDA-Public Use
  Company Number: US-BAYER-2017-190607

PATIENT
  Sex: Female

DRUGS (1)
  1. DROSPIRENONE + ETHINYLESTRADIOL 20?G (24+4) [Suspect]
     Active Substance: DROSPIRENONE\ETHINYL ESTRADIOL
     Indication: ENDOMETRIOSIS
     Dosage: UNK
     Route: 048
     Dates: start: 2015

REACTIONS (4)
  - Malaise [None]
  - Product use in unapproved indication [None]
  - Gastrointestinal disorder [None]
  - Diarrhoea [None]
